FAERS Safety Report 18498638 (Version 13)
Quarter: 2022Q4

REPORT INFORMATION
  Report Type: Report from Study
  Country: IL (occurrence: IL)
  Receive Date: 20201113
  Receipt Date: 20221004
  Transmission Date: 20230113
  Serious: Yes (Death, Life-Threatening, Hospitalization)
  Sender: FDA-Public Use
  Company Number: IL-ABBVIE-20K-082-3647128-00

PATIENT
  Age: 84 Year
  Sex: Female
  Weight: 88 kg

DRUGS (22)
  1. VENETOCLAX [Suspect]
     Active Substance: VENETOCLAX
     Indication: Acute myeloid leukaemia
     Dosage: RAMP UP
     Route: 048
     Dates: start: 20191118, end: 20191119
  2. VENETOCLAX [Suspect]
     Active Substance: VENETOCLAX
     Indication: Acute myeloid leukaemia
     Route: 048
     Dates: start: 20191120, end: 20200112
  3. VENETOCLAX [Suspect]
     Active Substance: VENETOCLAX
     Indication: Acute myeloid leukaemia
     Route: 048
     Dates: start: 20200226, end: 20200405
  4. VENETOCLAX [Suspect]
     Active Substance: VENETOCLAX
     Indication: Acute myeloid leukaemia
     Route: 048
     Dates: start: 20200505, end: 20201005
  5. DECITABINE [Suspect]
     Active Substance: DECITABINE
     Indication: Acute myeloid leukaemia
     Dosage: CYCLE 1
     Route: 042
     Dates: start: 20191117, end: 20191123
  6. DECITABINE [Suspect]
     Active Substance: DECITABINE
     Indication: Acute myeloid leukaemia
     Dosage: CYCLE 2
     Route: 042
     Dates: start: 20191231, end: 20200106
  7. DECITABINE [Suspect]
     Active Substance: DECITABINE
     Indication: Acute myeloid leukaemia
     Dosage: CYCLE 3
     Route: 042
     Dates: start: 20200329, end: 20200402
  8. DECITABINE [Suspect]
     Active Substance: DECITABINE
     Indication: Acute myeloid leukaemia
     Dosage: CYCLE 4
     Route: 042
     Dates: start: 20200426, end: 20200430
  9. DECITABINE [Suspect]
     Active Substance: DECITABINE
     Indication: Acute myeloid leukaemia
     Dosage: CYCLE 5
     Route: 042
     Dates: start: 20200531, end: 20200606
  10. DECITABINE [Suspect]
     Active Substance: DECITABINE
     Indication: Acute myeloid leukaemia
     Dosage: CYCLE 6
     Route: 042
     Dates: start: 20200628, end: 20200702
  11. DECITABINE [Suspect]
     Active Substance: DECITABINE
     Indication: Acute myeloid leukaemia
     Dosage: CYCLE 7
     Route: 042
     Dates: start: 20200728, end: 20200802
  12. DECITABINE [Suspect]
     Active Substance: DECITABINE
     Indication: Acute myeloid leukaemia
     Dosage: CYCLE 8
     Route: 042
     Dates: start: 20200903, end: 20200908
  13. DECITABINE [Suspect]
     Active Substance: DECITABINE
     Indication: Acute myeloid leukaemia
     Dosage: CYCLE 9
     Route: 042
     Dates: start: 20200927, end: 20201004
  14. DECITABINE [Suspect]
     Active Substance: DECITABINE
     Indication: Acute myeloid leukaemia
     Dosage: CYCLE 10
     Route: 042
     Dates: start: 20201025, end: 20201027
  15. CALMANERVIN [Concomitant]
     Indication: Anxiolytic therapy
     Dates: start: 20180923
  16. OMEPRAZOLE [Concomitant]
     Active Substance: OMEPRAZOLE
     Indication: Gastrooesophageal reflux disease
     Dates: start: 20110626, end: 20201129
  17. ATENOLOL [Concomitant]
     Active Substance: ATENOLOL
     Indication: Hypertension
     Dates: start: 20180902
  18. LERCANIDIPINE [Concomitant]
     Active Substance: LERCANIDIPINE
     Indication: Hypertension
     Dates: start: 20180902
  19. CALCIUM CARBONATE\VITAMIN D [Concomitant]
     Active Substance: CALCIUM CARBONATE\VITAMIN D
     Indication: Osteoporosis
     Dates: start: 20180902
  20. BROTIZOLAM [Concomitant]
     Active Substance: BROTIZOLAM
     Indication: Sedative therapy
     Dates: start: 2018
  21. ATENOLOL [Concomitant]
     Active Substance: ATENOLOL
     Indication: Prophylaxis
     Dates: start: 20090217, end: 20201202
  22. VASOPRIN [Concomitant]
     Indication: Prophylaxis
     Dates: start: 20170110, end: 20201129

REACTIONS (6)
  - Death [Fatal]
  - Asthenia [Recovered/Resolved]
  - Pneumonia [Not Recovered/Not Resolved]
  - Pancytopenia [Recovered/Resolved]
  - Pyrexia [Recovered/Resolved]
  - Neutropenia [Recovered/Resolved]

NARRATIVE: CASE EVENT DATE: 20200112
